FAERS Safety Report 4350177-1 (Version None)
Quarter: 2004Q2

REPORT INFORMATION
  Report Type: 
  Country: None (occurrence: None)
  Receive Date: 20040426
  Receipt Date: 20040413
  Transmission Date: 20050107
  Serious: Yes (Death, Hospitalization)
  Sender: FDA-Public Use
  Company Number: US-JNJFOC-20040302315

PATIENT
  Age: 84 Year
  Sex: Female

DRUGS (8)
  1. DOXIL [Suspect]
     Indication: OVARIAN CANCER
     Dosage: 30 MG/M2, INTRAVENOUS
     Route: 042
     Dates: start: 20040123, end: 20040123
  2. ATENOLOL [Concomitant]
  3. ELAVIL [Concomitant]
  4. MULTIVITAMIN (MULTIVITAMINS) [Concomitant]
  5. BENADRYL [Concomitant]
  6. PEPCID [Concomitant]
  7. DECADRON [Concomitant]
  8. PREMARIN [Concomitant]

REACTIONS (34)
  - ABDOMINAL PAIN [None]
  - BLOOD CREATININE INCREASED [None]
  - BLOOD MAGNESIUM INCREASED [None]
  - BLOOD POTASSIUM INCREASED [None]
  - BLOOD UREA INCREASED [None]
  - CELLULITIS [None]
  - COMA [None]
  - DEPRESSED LEVEL OF CONSCIOUSNESS [None]
  - DERMATITIS EXFOLIATIVE [None]
  - DIARRHOEA [None]
  - DRUG ERUPTION [None]
  - DRUG INEFFECTIVE [None]
  - ENCEPHALOPATHY [None]
  - FLUSHING [None]
  - GASTROINTESTINAL HAEMORRHAGE [None]
  - HAEMATOCRIT DECREASED [None]
  - HAEMOGLOBIN DECREASED [None]
  - HYPOAESTHESIA [None]
  - INFECTION [None]
  - MALIGNANT ASCITES [None]
  - MALIGNANT NEOPLASM PROGRESSION [None]
  - MARKEDLY REDUCED DIETARY INTAKE [None]
  - MENTAL STATUS CHANGES [None]
  - METABOLIC DISORDER [None]
  - OVARIAN CANCER [None]
  - OXYGEN SATURATION DECREASED [None]
  - POST PROCEDURAL COMPLICATION [None]
  - PRURITUS [None]
  - RASH GENERALISED [None]
  - RASH PRURITIC [None]
  - RESPIRATORY RATE DECREASED [None]
  - STOMATITIS [None]
  - URINARY INCONTINENCE [None]
  - WHITE BLOOD CELL COUNT INCREASED [None]
